FAERS Safety Report 8377850-2 (Version None)
Quarter: 2012Q2

REPORT INFORMATION
  Report Type: 
  Country: None (occurrence: None)
  Receive Date: 20120522
  Receipt Date: 20120516
  Transmission Date: 20120825
  Serious: Yes (Hospitalization)
  Sender: FDA-Public Use
  Company Number: US-MERCK-1203USA01855

PATIENT
  Age: 71 Year
  Sex: Female

DRUGS (8)
  1. VITAMIN E [Concomitant]
     Route: 065
     Dates: start: 19900101
  2. FOSAMAX [Suspect]
     Route: 048
     Dates: start: 20070317, end: 20080319
  3. ICAPS [Concomitant]
     Route: 065
     Dates: start: 19900101
  4. CHONDROITIN SULFATE SODIUM AND GLUCOSAMINE SULFATE [Concomitant]
     Route: 065
     Dates: start: 19900101
  5. ALENDRONATE SODIUM [Suspect]
     Indication: OSTEOPOROSIS
     Route: 048
     Dates: start: 20080410, end: 20100315
  6. FOSAMAX [Suspect]
     Indication: OSTEOPOROSIS
     Route: 048
     Dates: start: 19980101, end: 20050926
  7. FOSAMAX [Suspect]
     Route: 048
     Dates: start: 20051117, end: 20070201
  8. VITAMINS (UNSPECIFIED) [Concomitant]
     Route: 065
     Dates: start: 19900101

REACTIONS (7)
  - CATARACT [None]
  - STAPHYLOCOCCAL INFECTION [None]
  - HEAD INJURY [None]
  - NECK INJURY [None]
  - HYPERTENSION [None]
  - FEMUR FRACTURE [None]
  - SPINAL DISORDER [None]
